FAERS Safety Report 6195390-6 (Version None)
Quarter: 2009Q2

REPORT INFORMATION
  Report Type: 
  Country: None (occurrence: None)
  Receive Date: 20090519
  Receipt Date: 20090512
  Transmission Date: 20091009
  Serious: No
  Sender: FDA-Public Use
  Company Number: US-B.I. PHARMACEUTICALS,INC./RIDGEFIELD-2009-BP-04953BP

PATIENT
  Sex: Male

DRUGS (4)
  1. SPIRIVA [Suspect]
     Indication: EMPHYSEMA
     Dosage: 18MCG
     Route: 055
     Dates: end: 20090201
  2. WELLBUTRIN [Concomitant]
     Indication: DEPRESSION
     Dosage: 400MG
  3. NEURONTIN [Concomitant]
     Indication: ANXIETY
     Dosage: 800MG
  4. GEODON [Concomitant]
     Indication: MOOD SWINGS

REACTIONS (2)
  - WAIST CIRCUMFERENCE INCREASED [None]
  - WEIGHT INCREASED [None]
